FAERS Safety Report 4766443-1 (Version None)
Quarter: 2005Q3

REPORT INFORMATION
  Report Type: 
  Country: None (occurrence: None)
  Receive Date: 20050912
  Receipt Date: 20050901
  Transmission Date: 20060218
  Serious: Yes (Life-Threatening)
  Sender: FDA-Public Use
  Company Number: JP-ROCHE-416519

PATIENT
  Age: 91 Year
  Sex: Female

DRUGS (2)
  1. ROCEPHIN [Suspect]
     Indication: PNEUMONIA
     Route: 042
     Dates: start: 20050729
  2. CEFOTIAM HYDROCHLORIDE [Concomitant]
     Dosage: DOSE FORM REPORTED AS INJECTABLE
     Route: 050
     Dates: start: 20050719, end: 20050726

REACTIONS (4)
  - ALANINE AMINOTRANSFERASE INCREASED [None]
  - ASPARTATE AMINOTRANSFERASE INCREASED [None]
  - CARDIAC FAILURE [None]
  - DISSEMINATED INTRAVASCULAR COAGULATION [None]
